FAERS Safety Report 5164594-3 (Version None)
Quarter: 2006Q4

REPORT INFORMATION
  Report Type: 
  Country: None (occurrence: None)
  Receive Date: 20061205
  Receipt Date: 20061122
  Transmission Date: 20070319
  Serious: Yes (Disabling)
  Sender: FDA-Public Use
  Company Number: GB-MERCK-0611GBR00142

PATIENT
  Age: 81 Year
  Sex: Male
  Weight: 92 kg

DRUGS (5)
  1. HYDROCORTONE [Suspect]
     Indication: HAEMORRHOIDS
     Route: 054
     Dates: start: 20061024, end: 20061025
  2. DIBUCAINE [Suspect]
     Indication: HAEMORRHOIDS
     Route: 054
     Dates: start: 20061024, end: 20061025
  3. BETAHISTINE HYDROCHLORIDE [Concomitant]
     Indication: MENIERE'S DISEASE
     Route: 048
     Dates: start: 20000101
  4. PSYLLIUM HUSK [Concomitant]
     Indication: CONSTIPATION
     Route: 048
     Dates: start: 20050101
  5. SENNA [Concomitant]
     Indication: CONSTIPATION
     Route: 048
     Dates: start: 20050101

REACTIONS (4)
  - DRUG ERUPTION [None]
  - ERYTHEMA [None]
  - PRURITUS [None]
  - URTICARIA [None]
